FAERS Safety Report 4595300-9 (Version None)
Quarter: 2005Q1

REPORT INFORMATION
  Report Type: 
  Country: None (occurrence: None)
  Receive Date: 20050225
  Receipt Date: 20050225
  Transmission Date: 20050727
  Serious: Yes (Other)
  Sender: FDA-Public Use
  Company Number: None

PATIENT
  Age: 26 Year
  Sex: Female
  Weight: 67.586 kg

DRUGS (1)
  1. LUPRON [Suspect]
     Indication: PELVIC PAIN

REACTIONS (3)
  - DEPRESSION [None]
  - GOITRE [None]
  - MOOD ALTERED [None]
